FAERS Safety Report 6985225-3 (Version None)
Quarter: 2010Q3

REPORT INFORMATION
  Report Type: 
  Country: None (occurrence: None)
  Receive Date: 20100915
  Receipt Date: 20100907
  Transmission Date: 20110219
  Serious: Yes (Death, Hospitalization)
  Sender: FDA-Public Use
  Company Number: US-ROCHE-726761

PATIENT
  Age: 47 Year
  Sex: Female

DRUGS (7)
  1. BEVACIZUMAB [Suspect]
     Indication: BREAST CANCER
     Dosage: FREQUENCY : ON DAYS 1 AND 15
     Route: 042
     Dates: start: 20080723
  2. IXABEPILONE [Suspect]
     Indication: BREAST CANCER
     Dosage: FREQUENCY : ON DAYS 1, 8, AND 15
     Route: 042
     Dates: start: 20090723
  3. OXYCODONE [Concomitant]
  4. AMITRIPTYLINE HCL [Concomitant]
  5. METOPROLOL TARTRATE [Concomitant]
  6. NAPROXEN SODIUM [Concomitant]
  7. ZOLEDRONIC ACID [Concomitant]

REACTIONS (2)
  - HEPATIC FAILURE [None]
  - VENA CAVA THROMBOSIS [None]
